FAERS Safety Report 6610128-3 (Version None)
Quarter: 2010Q1

REPORT INFORMATION
  Report Type: 
  Country: None (occurrence: None)
  Receive Date: 20100219
  Receipt Date: 20100204
  Transmission Date: 20100710
  Serious: Yes (Hospitalization)
  Sender: FDA-Public Use
  Company Number: 2010AL000939

PATIENT
  Age: 69 Year
  Sex: Male

DRUGS (9)
  1. RAMIPRIL [Suspect]
     Indication: HYPERTENSION
     Dosage: 7.5 MG; QD
  2. DICLOFENAC SODIUM [Suspect]
     Indication: POSTOPERATIVE ANALGESIA
     Dosage: 75 MG
  3. IBUPROFEN [Suspect]
     Indication: OSTEOARTHRITIS
     Dosage: 600 MG
  4. FEVERALL [Suspect]
     Indication: POSTOPERATIVE ANALGESIA
     Dosage: 500 MG; TID
  5. OMEPRAZOLE [Concomitant]
  6. BERLOSIN [Concomitant]
  7. CEFUROXIME [Concomitant]
  8. FLOTRIN [Concomitant]
  9. NORSPAN [Concomitant]

REACTIONS (1)
  - PANCREATITIS [None]
